FAERS Safety Report 5643639-8 (Version None)
Quarter: 2008Q1

REPORT INFORMATION
  Report Type: 
  Country: None (occurrence: None)
  Receive Date: 20080228
  Receipt Date: 20080220
  Transmission Date: 20080703
  Serious: Yes (Other)
  Sender: FDA-Public Use
  Company Number: BE-JNJFOC-20080205152

PATIENT
  Sex: Female
  Weight: 60 kg

DRUGS (2)
  1. REMICADE [Suspect]
     Indication: CROHN'S DISEASE
     Route: 042
  2. TRAZODONE HCL [Concomitant]
     Indication: DEPRESSION

REACTIONS (3)
  - BASAL CELL CARCINOMA [None]
  - DEPRESSION [None]
  - SUICIDE ATTEMPT [None]
